FAERS Safety Report 19960870 (Version 2)
Quarter: 2024Q2

REPORT INFORMATION
  Report Type: Spontaneous
  Country: US (occurrence: None)
  Receive Date: 20211016
  Receipt Date: 20240530
  Transmission Date: 20240716
  Serious: Yes (Hospitalization)
  Sender: FDA-Public Use
  Company Number: US-ROCHE-2934781

PATIENT
  Sex: Male

DRUGS (32)
  1. ESBRIET [Suspect]
     Active Substance: PIRFENIDONE
     Indication: Product used for unknown indication
     Dosage: ONGOING: UNKNOWN, 2 CAPSULES WITH MEALS.
     Route: 048
     Dates: start: 20200317
  2. AMLODIPINE [Concomitant]
     Active Substance: AMLODIPINE BESYLATE
  3. AMOXICILLIN;CINEOLE;CLAVULANATE POTASSIUM;MENTHOL;PHOLCODINE;TERPIN [Concomitant]
  4. ATORVASTATIN [Concomitant]
     Active Substance: ATORVASTATIN
  5. AZITHROMYCIN [Concomitant]
     Active Substance: AZITHROMYCIN
  6. BENZONATATE [Concomitant]
     Active Substance: BENZONATATE
  7. BEVESPI AEROSPHERE [Concomitant]
     Active Substance: FORMOTEROL FUMARATE\GLYCOPYRROLATE
  8. CALCITRIOL [Concomitant]
     Active Substance: CALCITRIOL
  9. CEPHALEXIN [Concomitant]
     Active Substance: CEPHALEXIN
  10. CETIRIZINE [Concomitant]
     Active Substance: CETIRIZINE HYDROCHLORIDE
  11. CLOPIDOGREL [Concomitant]
     Active Substance: CLOPIDOGREL BISULFATE
  12. VITAMIN D3 [Concomitant]
     Active Substance: CHOLECALCIFEROL
  13. DOCUSATE SOD [Concomitant]
  14. FENOFIBRATE [Concomitant]
     Active Substance: FENOFIBRATE
  15. FINASTERIDE [Concomitant]
     Active Substance: FINASTERIDE
  16. GABAPENTIN [Concomitant]
     Active Substance: GABAPENTIN
  17. ISOSORBIDE MONONITRATE [Concomitant]
     Active Substance: ISOSORBIDE MONONITRATE
     Dosage: ER
  18. METAMUCIL [Concomitant]
     Active Substance: PLANTAGO SEED
  19. METOLAZONE [Concomitant]
     Active Substance: METOLAZONE
  20. NITROGLYCERIN [Concomitant]
     Active Substance: NITROGLYCERIN
     Dosage: SUB
  21. NOVOLOG [Concomitant]
     Active Substance: INSULIN ASPART
  22. PANTOPRAZOLE [Concomitant]
     Active Substance: PANTOPRAZOLE
  23. POLYETHYLENE GLYCOL [Concomitant]
     Active Substance: POLYETHYLENE GLYCOL
     Dosage: GLYC NF
  24. POTASSIUM CHLORIDE [Concomitant]
     Active Substance: POTASSIUM CHLORIDE
  25. PREDNISONE [Concomitant]
     Active Substance: PREDNISONE
  26. SODIUM CHLORIDE [Concomitant]
     Active Substance: SODIUM CHLORIDE
     Dosage: NEB 3%
  27. TAMSULOSIN [Concomitant]
     Active Substance: TAMSULOSIN
  28. TRESIBA [Concomitant]
     Active Substance: INSULIN DEGLUDEC
  29. TRIAMCINOLONE [Concomitant]
     Active Substance: TRIAMCINOLONE
  30. VICTOZA [Concomitant]
     Active Substance: LIRAGLUTIDE
  31. WARFARIN [Concomitant]
     Active Substance: WARFARIN
  32. CARVEDILOL [Concomitant]
     Active Substance: CARVEDILOL

REACTIONS (4)
  - Cardiac failure congestive [Unknown]
  - Wheezing [Unknown]
  - Hyperventilation [Unknown]
  - Haematological infection [Unknown]
